FAERS Safety Report 6427007-7 (Version None)
Quarter: 2009Q4

REPORT INFORMATION
  Report Type: 
  Country: None (occurrence: None)
  Receive Date: 20091104
  Receipt Date: 20091023
  Transmission Date: 20100525
  Serious: Yes (Other)
  Sender: FDA-Public Use
  Company Number: AU-MERCK-0910USA03090

PATIENT
  Age: 55 Year
  Sex: Male

DRUGS (4)
  1. NOROXIN [Suspect]
     Indication: FOOD POISONING
     Route: 048
     Dates: start: 20091018
  2. METFORMIN HCL [Concomitant]
     Route: 065
  3. ZOCOR [Concomitant]
     Route: 048
  4. DIAMICRON [Concomitant]
     Route: 065

REACTIONS (1)
  - PARALYSIS [None]
